FAERS Safety Report 7973015-4 (Version None)
Quarter: 2011Q4

REPORT INFORMATION
  Report Type: 
  Country: None (occurrence: None)
  Receive Date: 20111213
  Receipt Date: 20111205
  Transmission Date: 20120403
  Serious: Yes (Other)
  Sender: FDA-Public Use
  Company Number: US-BRISTOL-MYERS SQUIBB COMPANY-16268914

PATIENT
  Age: 67 Year
  Sex: Male
  Weight: 79 kg

DRUGS (7)
  1. DEXAMETHASONE [Concomitant]
  2. METFORMIN HCL [Concomitant]
     Dosage: 1000MG IN THE MOR 500MG IN EVE
  3. DOXYCYCLINE [Concomitant]
  4. CRESTOR [Concomitant]
  5. ERBITUX [Suspect]
     Indication: ADENOSQUAMOUS CELL CARCINOMA
     Dosage: INITIAL DOSE:820MG AND 512MG WEEKLY
     Dates: start: 20111026
  6. GLYBURIDE [Concomitant]
  7. LISINOPRIL [Concomitant]

REACTIONS (7)
  - DRY SKIN [None]
  - ONYCHOCLASIS [None]
  - LOCAL SWELLING [None]
  - HAEMORRHAGE [None]
  - RASH [None]
  - FLUSHING [None]
  - SKIN FISSURES [None]
